FAERS Safety Report 17306005 (Version 1)
Quarter: 2020Q1

REPORT INFORMATION
  Report Type: Spontaneous
  Country: US (occurrence: US)
  Receive Date: 20200123
  Receipt Date: 20200123
  Transmission Date: 20200409
  Serious: No
  Sender: FDA-Public Use
  Company Number: US-ENDO PHARMACEUTICALS INC-2018-043475

PATIENT
  Sex: Male

DRUGS (1)
  1. PERCOCET [Suspect]
     Active Substance: ACETAMINOPHEN\OXYCODONE HYDROCHLORIDE
     Indication: BREAKTHROUGH PAIN
     Dosage: UNK, UNKNOWN
     Route: 048
     Dates: start: 2008

REACTIONS (3)
  - Rash [Recovered/Resolved]
  - Pain [Not Recovered/Not Resolved]
  - Mass [Recovered/Resolved]

NARRATIVE: CASE EVENT DATE: 2007
